FAERS Safety Report 6874000-6 (Version None)
Quarter: 2010Q3

REPORT INFORMATION
  Report Type: 
  Country: None (occurrence: None)
  Receive Date: 20100723
  Receipt Date: 20090324
  Transmission Date: 20110219
  Serious: Yes (Other)
  Sender: FDA-Public Use
  Company Number: US-PFIZER INC-2009189255

PATIENT
  Sex: Male
  Weight: 74.83 kg

DRUGS (1)
  1. CHANTIX [Suspect]
     Dosage: UNK
     Dates: start: 20090201, end: 20090301

REACTIONS (2)
  - ANXIETY [None]
  - SUICIDAL IDEATION [None]
